FAERS Safety Report 4499422-2 (Version None)
Quarter: 2004Q4

REPORT INFORMATION
  Report Type: 
  Country: None (occurrence: None)
  Receive Date: 20040928
  Receipt Date: 20040809
  Transmission Date: 20050328
  Serious: No
  Sender: FDA-Public Use
  Company Number: 04P-163-0269692-00

PATIENT
  Age: 56 Year
  Sex: Female
  Weight: 92.5338 kg

DRUGS (3)
  1. HUMIRA [Suspect]
     Indication: RHEUMATOID ARTHRITIS
     Dosage: 40 MG 1 IN 2 WK SUBCUTANEOUS
     Route: 058
     Dates: start: 20040101
  2. CELECOXIB [Concomitant]
  3. ESTRACE [Concomitant]

REACTIONS (2)
  - EYELID OEDEMA [None]
  - PRURITUS [None]
